FAERS Safety Report 18706125 (Version 3)
Quarter: 2021Q4

REPORT INFORMATION
  Report Type: Report from Study
  Country: US (occurrence: US)
  Receive Date: 20210106
  Receipt Date: 20211013
  Transmission Date: 20220303
  Serious: Yes (Hospitalization, Other)
  Sender: FDA-Public Use
  Company Number: US-BRISTOL-MYERS SQUIBB COMPANY-BMS-2020-113128

PATIENT
  Age: 83 Year
  Sex: Male
  Weight: 74.83 kg

DRUGS (4)
  1. APIXABAN [Suspect]
     Active Substance: APIXABAN
     Indication: Deep vein thrombosis
     Dosage: 2.5 MILLIGRAM, BID
     Route: 048
  2. SOTALOL [Concomitant]
     Active Substance: SOTALOL
     Indication: Product used for unknown indication
     Dosage: UNK
     Route: 065
  3. ATORVASTATIN [Concomitant]
     Active Substance: ATORVASTATIN
     Indication: Product used for unknown indication
     Dosage: UNK
     Route: 065
  4. LOSARTAN [Concomitant]
     Active Substance: LOSARTAN
     Indication: Product used for unknown indication
     Dosage: UNK
     Route: 065

REACTIONS (10)
  - Diverticulitis [Unknown]
  - Cardiac disorder [Unknown]
  - Loss of consciousness [Unknown]
  - Gait inability [Unknown]
  - Paraesthesia [Unknown]
  - Somnolence [Unknown]
  - Dizziness [Unknown]
  - Photosensitivity reaction [Unknown]
  - Fall [Unknown]
  - Muscle tightness [Unknown]

NARRATIVE: CASE EVENT DATE: 20210601
